FAERS Safety Report 10268096 (Version 1)
Quarter: 2014Q2

REPORT INFORMATION
  Report Type: Spontaneous
  Country: US (occurrence: US)
  Receive Date: 20140630
  Receipt Date: 20140630
  Transmission Date: 20141212
  Serious: Yes (Hospitalization, Other)
  Sender: FDA-Public Use
  Company Number: US-ACTAVIS-2014-13621

PATIENT
  Age: 63 Year
  Sex: Female

DRUGS (10)
  1. GABAPENTIN (AELLC) [Suspect]
     Indication: SUICIDE ATTEMPT
     Dosage: 90 G, UNKNOWN
     Route: 048
  2. GABAPENTIN (AELLC) [Suspect]
     Indication: INTENTIONAL OVERDOSE
  3. HYDROCODONE BITARTRATE/ACETAMINOPHEN 5/325 MG (WATSON LABORATORIES) [Suspect]
     Indication: SUICIDE ATTEMPT
     Dosage: 4 X 5/325 MG TABLETS
     Route: 048
  4. HYDROCODONE BITARTRATE/ACETAMINOPHEN 5/325 MG (WATSON LABORATORIES) [Suspect]
     Indication: INTENTIONAL OVERDOSE
  5. VENLAFAXINE [Concomitant]
     Indication: PRODUCT USED FOR UNKNOWN INDICATION
     Dosage: UNKNOWN
     Route: 065
  6. TELMISARTAN [Concomitant]
     Indication: PRODUCT USED FOR UNKNOWN INDICATION
     Dosage: UNKNOWN
     Route: 065
  7. GLIPIZIDE [Concomitant]
     Indication: PRODUCT USED FOR UNKNOWN INDICATION
     Dosage: UNKNOWN
     Route: 065
  8. METFORMIN [Concomitant]
     Indication: PRODUCT USED FOR UNKNOWN INDICATION
     Dosage: UNKNOWN
     Route: 065
  9. SIMVASTATIN [Concomitant]
     Indication: PRODUCT USED FOR UNKNOWN INDICATION
     Dosage: UNKNOWN
     Route: 065
  10. GEMFIBROZIL [Concomitant]
     Indication: PRODUCT USED FOR UNKNOWN INDICATION
     Dosage: UNKNOWN
     Route: 065

REACTIONS (4)
  - Sedation [Recovered/Resolved]
  - Nausea [Recovered/Resolved]
  - Intentional overdose [Recovered/Resolved]
  - Suicide attempt [Unknown]
